FAERS Safety Report 5347609-9 (Version None)
Quarter: 2007Q2

REPORT INFORMATION
  Report Type: 
  Country: None (occurrence: None)
  Receive Date: 20070604
  Receipt Date: 20070604
  Transmission Date: 20071010
  Serious: Yes (Life-Threatening)
  Sender: FDA-Public Use
  Company Number: None

PATIENT
  Age: 52 Year
  Sex: Male
  Weight: 73.4827 kg

DRUGS (5)
  1. KLOR-CON M10 [Suspect]
     Indication: HYPOKALAEMIA
     Dosage: 10 MEQ 4 PER DAY PO
     Route: 048
     Dates: start: 20070301, end: 20070531
  2. LASIX [Concomitant]
  3. MTOLOZONE [Concomitant]
  4. ASPIRIN [Concomitant]
  5. NIASPAN [Concomitant]

REACTIONS (3)
  - DRUG INEFFECTIVE [None]
  - MEDICATION RESIDUE [None]
  - PHARMACEUTICAL PRODUCT COMPLAINT [None]
